FAERS Safety Report 15489870 (Version 1)
Quarter: 2018Q4

REPORT INFORMATION
  Report Type: Spontaneous
  Country: US (occurrence: US)
  Receive Date: 20181011
  Receipt Date: 20181011
  Transmission Date: 20190205
  Serious: No
  Sender: FDA-Public Use
  Company Number: US-OPTINOSE US, INC.-US-2018OPT000172

PATIENT
  Sex: Female
  Weight: 64.85 kg

DRUGS (20)
  1. XHANCE [Suspect]
     Active Substance: FLUTICASONE PROPIONATE
     Dosage: 186 ?G, QD (1 SPRAY EACH NOSTRIL QD)
     Route: 045
     Dates: start: 201806, end: 2018
  2. ARNUITY ELLIPTA [Concomitant]
     Active Substance: FLUTICASONE FUROATE
     Indication: ILL-DEFINED DISORDER
  3. XOPENEX [Concomitant]
     Active Substance: LEVALBUTEROL HYDROCHLORIDE
     Indication: SECRETION DISCHARGE
     Dosage: 4 DF (PUFFS), QD
     Dates: start: 2017
  4. FLOVENT [Concomitant]
     Active Substance: FLUTICASONE PROPIONATE
     Indication: ILL-DEFINED DISORDER
  5. ALLEGRA [Concomitant]
     Active Substance: FEXOFENADINE HYDROCHLORIDE
     Indication: SECRETION DISCHARGE
     Dosage: 180 MG, QD (IN AM)
     Route: 048
     Dates: start: 2017
  6. ALLEGRA [Concomitant]
     Active Substance: FEXOFENADINE HYDROCHLORIDE
     Indication: ILL-DEFINED DISORDER
  7. MIRALAX [Concomitant]
     Active Substance: POLYETHYLENE GLYCOL 3350
     Indication: GASTROINTESTINAL DISORDER
     Dosage: ^WHATEVER THE SERVING SIZE IS^
     Dates: start: 2017
  8. ESOMEPRAZOLE. [Concomitant]
     Active Substance: ESOMEPRAZOLE MAGNESIUM
     Indication: GASTROOESOPHAGEAL REFLUX DISEASE
     Dosage: 40 MG, UNK
     Route: 048
     Dates: start: 201804
  9. DYMISTA [Concomitant]
     Active Substance: AZELASTINE HYDROCHLORIDE\FLUTICASONE PROPIONATE
     Indication: UPPER-AIRWAY COUGH SYNDROME
     Dosage: 137 ?G, QD (AT NIGHT)
     Route: 045
     Dates: start: 2017
  10. XOPENEX [Concomitant]
     Active Substance: LEVALBUTEROL HYDROCHLORIDE
     Indication: ILL-DEFINED DISORDER
  11. FAMOTIDINE. [Concomitant]
     Active Substance: FAMOTIDINE
     Indication: GASTROOESOPHAGEAL REFLUX DISEASE
     Dosage: 60 MG (THREE 20 MG TABLETS), BID (AT LUNCH AND DINNER)
     Route: 048
  12. FLOVENT [Concomitant]
     Active Substance: FLUTICASONE PROPIONATE
     Indication: SECRETION DISCHARGE
     Dosage: 3 DF (PUFFS), QD
     Dates: start: 2017
  13. ROBITUSSIN (GUAIFENESIN) [Concomitant]
     Active Substance: GUAIFENESIN
     Indication: ILL-DEFINED DISORDER
  14. XHANCE [Suspect]
     Active Substance: FLUTICASONE PROPIONATE
     Indication: UPPER-AIRWAY COUGH SYNDROME
     Dosage: 186 ?G, BID (1 SPRAY EACH NOSTRIL BID)
     Route: 045
     Dates: start: 201806, end: 201806
  15. XHANCE [Suspect]
     Active Substance: FLUTICASONE PROPIONATE
     Dosage: 186 ?G, QD (1 SPRAY EACH NOSTRIL QD - DIFFERENT TIME OF DAY)
     Route: 045
     Dates: start: 2018
  16. SPIRIVA [Concomitant]
     Active Substance: TIOTROPIUM BROMIDE MONOHYDRATE
     Indication: PULMONARY CONGESTION
     Dosage: 18 ?G, UNK
     Dates: start: 2017
  17. GAVISCON                           /00237601/ [Concomitant]
     Active Substance: ALUMINUM HYDROXIDE\MAGNESIUM CARBONATE
     Indication: GASTROOESOPHAGEAL REFLUX DISEASE
     Dosage: 12 DF (CAPS), PRN
     Route: 048
     Dates: start: 201804
  18. ARNUITY ELLIPTA [Concomitant]
     Active Substance: FLUTICASONE FUROATE
     Indication: SECRETION DISCHARGE
     Dosage: UNK
     Dates: start: 2017
  19. ROBITUSSIN (GUAIFENESIN) [Concomitant]
     Active Substance: GUAIFENESIN
     Indication: SECRETION DISCHARGE
     Dosage: 7 DF (CAPFULS), QD
     Route: 048
     Dates: start: 2017
  20. MONTELUKAST [Concomitant]
     Active Substance: MONTELUKAST SODIUM
     Indication: GASTROOESOPHAGEAL REFLUX DISEASE
     Dosage: 10 MG, QD (EVENING)
     Route: 048
     Dates: start: 201804

REACTIONS (9)
  - Headache [Recovering/Resolving]
  - Palpitations [Recovering/Resolving]
  - Drug interaction [Unknown]
  - Nausea [Recovering/Resolving]
  - Vomiting [Recovered/Resolved]
  - Drug effective for unapproved indication [Unknown]
  - Diarrhoea [Recovering/Resolving]
  - Drug intolerance [Unknown]
  - Incorrect dose administered [Unknown]

NARRATIVE: CASE EVENT DATE: 2018
